FAERS Safety Report 11863943 (Version 2)
Quarter: 2015Q4

REPORT INFORMATION
  Report Type: Spontaneous
  Country: US (occurrence: US)
  Receive Date: 20151223
  Receipt Date: 20151229
  Transmission Date: 20160305
  Serious: Yes (Hospitalization)
  Sender: FDA-Public Use
  Company Number: US-ELI_LILLY_AND_COMPANY-US201512006041

PATIENT
  Sex: Female

DRUGS (3)
  1. ADCIRCA [Suspect]
     Active Substance: TADALAFIL
     Indication: PRODUCT USED FOR UNKNOWN INDICATION
     Dosage: 40 MG, QD
     Route: 048
  2. VELETRI [Concomitant]
     Active Substance: EPOPROSTENOL
     Dosage: UNK, UNKNOWN
     Route: 055
  3. OPSUMIT [Concomitant]
     Active Substance: MACITENTAN
     Dosage: 10 MG, QD
     Route: 048

REACTIONS (1)
  - Right ventricular failure [Unknown]
